FAERS Safety Report 21476632 (Version 2)
Quarter: 2024Q2

REPORT INFORMATION
  Report Type: Spontaneous
  Country: US (occurrence: US)
  Receive Date: 20221019
  Receipt Date: 20240424
  Transmission Date: 20240716
  Serious: No
  Sender: FDA-Public Use
  Company Number: US-ABBVIE-4158585

PATIENT
  Sex: Male

DRUGS (25)
  1. CREON [Suspect]
     Active Substance: PANCRELIPASE AMYLASE\PANCRELIPASE LIPASE\PANCRELIPASE PROTEASE
     Indication: Product used for unknown indication
     Route: 048
  2. CLARITIN-D NOS [Suspect]
     Active Substance: LORATADINE\PSEUDOEPHEDRINE SULFATE
     Indication: Product used for unknown indication
     Route: 065
  3. BENZALKONIUM CHLORIDE [Suspect]
     Active Substance: BENZALKONIUM\BENZALKONIUM CHLORIDE
     Indication: Product used for unknown indication
     Route: 065
  4. OMEPRAZOLE [Suspect]
     Active Substance: OMEPRAZOLE
     Indication: Product used for unknown indication
     Route: 065
  5. LEVSIN [Concomitant]
     Active Substance: HYOSCYAMINE SULFATE
     Indication: Product used for unknown indication
  6. METOPROLOL\RAMIPRIL [Suspect]
     Active Substance: METOPROLOL\RAMIPRIL
     Indication: Product used for unknown indication
     Route: 065
  7. KEVZARA [Suspect]
     Active Substance: SARILUMAB
     Indication: Product used for unknown indication
     Route: 065
  8. CLARITIN [Concomitant]
     Active Substance: LORATADINE
     Indication: Product used for unknown indication
  9. FENOFIBRATE [Suspect]
     Active Substance: FENOFIBRATE
     Indication: Product used for unknown indication
     Route: 048
  10. BUSPIRONE HCL [Concomitant]
     Active Substance: BUSPIRONE HYDROCHLORIDE
     Indication: Product used for unknown indication
  11. PREDNISONE [Suspect]
     Active Substance: PREDNISONE
     Indication: Product used for unknown indication
     Route: 065
  12. FOLIC ACID [Suspect]
     Active Substance: FOLIC ACID
     Indication: Product used for unknown indication
     Route: 065
  13. BUPROPION [Suspect]
     Active Substance: BUPROPION
     Indication: Product used for unknown indication
     Route: 065
  14. CARAFATE [Concomitant]
     Active Substance: SUCRALFATE
     Indication: Product used for unknown indication
  15. LANTUS [Concomitant]
     Active Substance: INSULIN GLARGINE
     Indication: Product used for unknown indication
  16. NUVIGIL [Suspect]
     Active Substance: ARMODAFINIL
     Indication: Product used for unknown indication
     Route: 065
  17. METHOTREXATE [Suspect]
     Active Substance: METHOTREXATE
     Indication: Product used for unknown indication
     Route: 065
  18. SODIUM BICARBONATE [Concomitant]
     Active Substance: SODIUM BICARBONATE
     Indication: Product used for unknown indication
  19. SIMVASTATIN [Suspect]
     Active Substance: SIMVASTATIN
     Indication: Product used for unknown indication
     Route: 065
  20. NOVOLOG [Suspect]
     Active Substance: INSULIN ASPART
     Indication: Product used for unknown indication
     Route: 065
  21. LEVSIN [Suspect]
     Active Substance: HYOSCYAMINE SULFATE
     Indication: Product used for unknown indication
     Route: 065
  22. BENZOCAINE [Suspect]
     Active Substance: BENZOCAINE
     Indication: Product used for unknown indication
     Route: 065
  23. BORIC ACID [Suspect]
     Active Substance: BORIC ACID
     Indication: Product used for unknown indication
     Route: 065
  24. NEOMYCIN [Suspect]
     Active Substance: NEOMYCIN
     Indication: Product used for unknown indication
     Route: 065
  25. VITAMIN A [Suspect]
     Active Substance: VITAMIN A
     Indication: Product used for unknown indication
     Route: 065

REACTIONS (10)
  - Fatigue [Unknown]
  - Arthralgia [Unknown]
  - Pain [Unknown]
  - Pain in extremity [Unknown]
  - Product use in unapproved indication [Unknown]
  - Joint stiffness [Unknown]
  - Peripheral swelling [Unknown]
  - Anaemia [Unknown]
  - Musculoskeletal stiffness [Unknown]
  - Chest pain [Unknown]
